FAERS Safety Report 17047693 (Version 2)
Quarter: 2020Q4

REPORT INFORMATION
  Report Type: Spontaneous
  Country: US (occurrence: US)
  Receive Date: 20191119
  Receipt Date: 20201112
  Transmission Date: 20210113
  Serious: Yes (Other)
  Sender: FDA-Public Use
  Company Number: US-PFIZER INC-2019498164

PATIENT
  Age: 62 Year
  Sex: Female

DRUGS (2)
  1. CLONAZEPAM. [Interacting]
     Active Substance: CLONAZEPAM
     Dosage: UNK
  2. LYRICA [Suspect]
     Active Substance: PREGABALIN
     Dosage: 225 MG, 2X/DAY(BID/TWICE A DAY)
     Route: 048

REACTIONS (6)
  - Contraindicated product prescribed [Unknown]
  - Drug interaction [Unknown]
  - Sleep apnoea syndrome [Unknown]
  - Major depression [Unknown]
  - Emotional disorder [Unknown]
  - Depression [Unknown]
